FAERS Safety Report 4403746-4 (Version None)
Quarter: 2004Q3

REPORT INFORMATION
  Report Type: 
  Country: None (occurrence: None)
  Receive Date: 20040719
  Receipt Date: 20040709
  Transmission Date: 20050211
  Serious: Yes (Life-Threatening, Other)
  Sender: FDA-Public Use
  Company Number: 2004-05-0625

PATIENT
  Age: 48 Year
  Sex: Male
  Weight: 81.6475 kg

DRUGS (6)
  1. CLARITIN-D 24 HOUR [Suspect]
     Indication: SNEEZING
     Dosage: ORAL
     Route: 048
     Dates: start: 20040507, end: 20040507
  2. LIPITOR [Concomitant]
  3. GLUCOSAMINE [Concomitant]
  4. TRAMADOL HCL [Concomitant]
  5. FLOMAX [Concomitant]
  6. MULTI-VITAMINS [Concomitant]

REACTIONS (5)
  - ANEURYSM [None]
  - DIZZINESS [None]
  - HAEMORRHAGE [None]
  - INTRACRANIAL ANEURYSM [None]
  - NECK PAIN [None]
